FAERS Safety Report 8384602-6 (Version None)
Quarter: 2012Q2

REPORT INFORMATION
  Report Type: 
  Country: None (occurrence: None)
  Receive Date: 20120524
  Receipt Date: 20120518
  Transmission Date: 20120825
  Serious: Yes (Other)
  Sender: FDA-Public Use
  Company Number: BR-B.I. PHARMACEUTICALS,INC./RIDGEFIELD-2012-BR-00493BR

PATIENT
  Sex: Male

DRUGS (4)
  1. METOPROLOL SUCCINATE [Concomitant]
     Indication: CARDIAC DISORDER
  2. MODURETIC 5-50 [Concomitant]
     Indication: HYPERTENSION
  3. TELMISARTAN/AMLODIPINE BESYLATE [Suspect]
     Indication: HYPERTENSION
     Route: 048
     Dates: start: 20120510
  4. CONTRAST [Suspect]
     Indication: DIAGNOSTIC PROCEDURE

REACTIONS (5)
  - LOSS OF CONSCIOUSNESS [None]
  - VOMITING [None]
  - FEELING HOT [None]
  - HYPERTENSIVE CRISIS [None]
  - CONTRAST MEDIA REACTION [None]
